FAERS Safety Report 9305515 (Version 1)
Quarter: 2013Q2

REPORT INFORMATION
  Report Type: Spontaneous
  Country: US (occurrence: None)
  Receive Date: 20130522
  Receipt Date: 20130522
  Transmission Date: 20140414
  Serious: Yes (Hospitalization)
  Sender: FDA-Public Use
  Company Number: None

PATIENT
  Age: 68 Year
  Sex: Female
  Weight: 65.5 kg

DRUGS (4)
  1. NILOTINIB [Suspect]
     Indication: CHORDOMA
     Dates: start: 20120625, end: 20121116
  2. LEXAPRO [Concomitant]
  3. LIPITOR [Concomitant]
  4. COLACE [Concomitant]

REACTIONS (1)
  - Postoperative wound infection [None]
